FAERS Safety Report 5215207-3 (Version None)
Quarter: 2007Q1

REPORT INFORMATION
  Report Type: 
  Country: None (occurrence: None)
  Receive Date: 20061108
  Receipt Date: 20060815
  Transmission Date: 20070707
  Serious: Yes (Other)
  Sender: FDA-Public Use
  Company Number: US200608003317

PATIENT
  Age: 53 Year
  Sex: Female

DRUGS (13)
  1. STRATTERA [Suspect]
     Indication: ATTENTION DEFICIT/HYPERACTIVITY DISORDER
     Dosage: 80 MG
  2. PROZAC [Suspect]
     Indication: DEPRESSION
     Dosage: 80 MG, 160 MG
  3. OXYCODONE HCL [Concomitant]
  4. KLONOPIN [Concomitant]
  5. TRIAMTERENE (TRIAMTERENE) [Concomitant]
  6. ALBUTEROL [Concomitant]
  7. AZAMACORT (TRIAMCINOLONE ACETONIDE) [Concomitant]
  8. POTASSIUM (POTASSIUM) [Concomitant]
  9. FIORINAL [Concomitant]
  10. CARTIA  /AUS/ (ACETYLSALICYLIC ACID) [Concomitant]
  11. SOMA [Concomitant]
  12. TAXOXIFEN (TAMOXIFEN) [Concomitant]
  13. FLUOXETINE [Concomitant]

REACTIONS (11)
  - ACCIDENTAL OVERDOSE [None]
  - DRUG ADMINISTRATION ERROR [None]
  - DRUG INTOLERANCE [None]
  - DYSLEXIA [None]
  - FEELING ABNORMAL [None]
  - INTERVERTEBRAL DISC DEGENERATION [None]
  - NERVE INJURY [None]
  - PANIC ATTACK [None]
  - PSYCHOMOTOR HYPERACTIVITY [None]
  - SUICIDAL IDEATION [None]
  - SUICIDE ATTEMPT [None]
